FAERS Safety Report 5079328-0 (Version None)
Quarter: 2006Q3

REPORT INFORMATION
  Report Type: 
  Country: None (occurrence: None)
  Receive Date: 20060720
  Receipt Date: 20050705
  Transmission Date: 20061208
  Serious: Yes (Hospitalization, Other)
  Sender: FDA-Public Use
  Company Number: 2005100548

PATIENT
  Age: 64 Year
  Sex: Female

DRUGS (10)
  1. CELEBREX [Suspect]
     Indication: ILL-DEFINED DISORDER
     Dosage: 200 MG
     Dates: start: 20011101
  2. COZAAR [Concomitant]
  3. PROTONIX [Concomitant]
  4. HYOSCYAMINE (HYOSCYAMINE) [Concomitant]
  5. GLYBURIDE [Concomitant]
  6. HYDROCHLOROTHIAZIDE (HYDORCHLOROTHIAZIDE) [Concomitant]
  7. METFORMIN (METFORMIN) [Concomitant]
  8. PRAVACHOL [Concomitant]
  9. ACTONEL [Concomitant]
  10. PLAVIX [Concomitant]

REACTIONS (3)
  - ACUTE MYOCARDIAL INFARCTION [None]
  - CARDIAC FAILURE CONGESTIVE [None]
  - CORONARY ARTERY STENOSIS [None]
